FAERS Safety Report 7578324-9 (Version None)
Quarter: 2011Q2

REPORT INFORMATION
  Report Type: 
  Country: None (occurrence: None)
  Receive Date: 20110628
  Receipt Date: 20110616
  Transmission Date: 20111010
  Serious: Yes (Hospitalization, Other)
  Sender: FDA-Public Use
  Company Number: US-BAYER-201034273NA

PATIENT
  Age: 16 Year
  Sex: Female
  Weight: 68.027 kg

DRUGS (10)
  1. AXERT [Concomitant]
     Dosage: UNK
     Dates: start: 20080501
  2. YASMIN [Suspect]
     Indication: CONTRACEPTION
     Route: 048
     Dates: start: 20061201, end: 20070301
  3. DEPO-PROVERA [Concomitant]
     Dosage: UNK
     Dates: start: 20070301
  4. UNCODEABLE ^UNCLASSIFIABLE^ [Concomitant]
     Dosage: UNK
     Dates: start: 20080501
  5. REQUIP [Concomitant]
     Dosage: UNK
     Dates: start: 20080501
  6. YASMIN [Suspect]
     Indication: DYSFUNCTIONAL UTERINE BLEEDING
     Dosage: UNK
     Dates: start: 20061124, end: 20070316
  7. YAZ [Suspect]
     Indication: DYSFUNCTIONAL UTERINE BLEEDING
  8. ORTHO TRI-CYCLEN LO [Concomitant]
     Dosage: UNK
     Dates: start: 20080629
  9. YASMIN [Suspect]
     Dosage: UNK
     Dates: start: 20061224, end: 20070218
  10. YAZ [Suspect]
     Indication: CONTRACEPTION
     Dosage: UNK
     Dates: start: 20061124, end: 20070316

REACTIONS (8)
  - PARTIAL SEIZURES [None]
  - LOSS OF CONSCIOUSNESS [None]
  - TREMOR [None]
  - INCOHERENT [None]
  - CONVULSION [None]
  - MIGRAINE [None]
  - CLONIC CONVULSION [None]
  - HYPERVENTILATION [None]
